FAERS Safety Report 7007747-1 (Version None)
Quarter: 2010Q3

REPORT INFORMATION
  Report Type: 
  Country: None (occurrence: None)
  Receive Date: 20100920
  Receipt Date: 20100913
  Transmission Date: 20110219
  Serious: Yes (Death, Other)
  Sender: FDA-Public Use
  Company Number: 2010SP048209

PATIENT
  Age: 12 Year
  Sex: Female

DRUGS (2)
  1. TEMODAL [Suspect]
     Indication: ANAPLASTIC ASTROCYTOMA
     Dosage: 75 MG/M2; QD; PO, 150 MG/M2; QD; PO, 200 MG/M2; QD; PO
     Route: 048
  2. TEMODAL [Suspect]
     Indication: ANAPLASTIC ASTROCYTOMA
     Dosage: 75 MG/M2; QD; PO, 150 MG/M2; QD; PO, 200 MG/M2; QD; PO
     Route: 048

REACTIONS (4)
  - B PRECURSOR TYPE ACUTE LEUKAEMIA [None]
  - CEREBRAL ATROPHY [None]
  - HYDROCEPHALUS [None]
  - PNEUMONIA [None]
